FAERS Safety Report 9656025 (Version 2)
Quarter: 2013Q4

REPORT INFORMATION
  Report Type: Other
  Country: FR (occurrence: FR)
  Receive Date: 20131030
  Receipt Date: 20131209
  Transmission Date: 20140711
  Serious: Yes (Hospitalization, Other)
  Sender: FDA-Public Use
  Company Number: FR-MPIJNJ-2013JNJ000738

PATIENT
  Sex: 0

DRUGS (6)
  1. VELCADE [Suspect]
     Indication: PLASMA CELL MYELOMA
     Dosage: UNK
     Route: 058
     Dates: start: 20130822
  2. VELCADE [Suspect]
     Dosage: 3.5 MG, UNK
     Route: 042
     Dates: start: 20130912, end: 20130923
  3. VELCADE [Suspect]
     Dosage: UNK
     Route: 065
     Dates: start: 20131029, end: 20131119
  4. NEODEX [Suspect]
     Indication: PLASMA CELL MYELOMA
     Dosage: UNK
     Route: 048
     Dates: start: 20130822
  5. NEODEX [Suspect]
     Dosage: 40 MG, UNK
     Route: 048
     Dates: start: 20130912, end: 20130923
  6. ENDOXAN                            /00021101/ [Concomitant]
     Dosage: 100 MG, UNK
     Route: 048
     Dates: start: 20130822

REACTIONS (1)
  - Pancreatitis acute [Recovered/Resolved]
